FAERS Safety Report 8350657-8 (Version None)
Quarter: 2012Q2

REPORT INFORMATION
  Report Type: 
  Country: None (occurrence: None)
  Receive Date: 20120510
  Receipt Date: 20120427
  Transmission Date: 20120825
  Serious: Yes (Death)
  Sender: FDA-Public Use
  Company Number: US-WATSON-2012-07451

PATIENT
  Age: 65 Year
  Sex: Male
  Weight: 121.5 kg

DRUGS (1)
  1. RAPAFLO [Suspect]
     Indication: URINARY RETENTION
     Dosage: 8 MG, DAILY
     Route: 048
     Dates: start: 20120419, end: 20120420

REACTIONS (2)
  - MYOCARDIAL INFARCTION [None]
  - DIZZINESS [None]
